FAERS Safety Report 16827275 (Version 7)
Quarter: 2024Q2

REPORT INFORMATION
  Report Type: Spontaneous
  Country: JP (occurrence: JP)
  Receive Date: 20190919
  Receipt Date: 20240529
  Transmission Date: 20240716
  Serious: Yes (Hospitalization, Other)
  Sender: FDA-Public Use
  Company Number: JP-GLAXOSMITHKLINE-JP2019JPN166405

PATIENT

DRUGS (7)
  1. BENLYSTA [Suspect]
     Active Substance: BELIMUMAB
     Indication: Systemic lupus erythematosus
     Dosage: 200 MG, WE
     Route: 058
     Dates: start: 20180416, end: 2019
  2. METHOTREXATE [Concomitant]
     Active Substance: METHOTREXATE
     Indication: Systemic lupus erythematosus
     Dosage: 6 MG, 1D
  3. METHOTREXATE [Concomitant]
     Active Substance: METHOTREXATE
     Indication: Arthritis
  4. PREDNISOLONE [Concomitant]
     Active Substance: PREDNISOLONE
     Indication: Systemic lupus erythematosus
     Dosage: 12 MG, 1D
  5. PREDNISOLONE [Concomitant]
     Active Substance: PREDNISOLONE
     Indication: Arthritis
  6. AZATHIOPRINE [Concomitant]
     Active Substance: AZATHIOPRINE
     Indication: Systemic lupus erythematosus
     Dosage: 100 MG, 1D
  7. AZATHIOPRINE [Concomitant]
     Active Substance: AZATHIOPRINE
     Indication: Arthritis

REACTIONS (8)
  - Systemic lupus erythematosus [Recovered/Resolved]
  - Condition aggravated [Recovered/Resolved]
  - Lupus enteritis [Recovered/Resolved]
  - Ascites [Recovered/Resolved]
  - Gastrointestinal oedema [Recovered/Resolved]
  - Vomiting [Recovered/Resolved]
  - Diarrhoea [Recovered/Resolved]
  - Prerenal failure [Recovered/Resolved]

NARRATIVE: CASE EVENT DATE: 20190101
